FAERS Safety Report 23291409 (Version 1)
Quarter: 2023Q4

REPORT INFORMATION
  Report Type: Spontaneous
  Country: GR (occurrence: GR)
  Receive Date: 20231213
  Receipt Date: 20231213
  Transmission Date: 20240110
  Serious: Yes (Hospitalization, Other)
  Sender: FDA-Public Use
  Company Number: GR-VIANEX-002608

PATIENT
  Age: 44 Year
  Sex: Male

DRUGS (2)
  1. PREDNISOLONE [Suspect]
     Active Substance: PREDNISOLONE
     Indication: Sarcoidosis
     Dosage: 15.000MG QD
     Route: 065
  2. HYDROXYCHLOROQUINE [Concomitant]
     Active Substance: HYDROXYCHLOROQUINE
     Indication: Sarcoidosis
     Dosage: UNK
     Route: 065

REACTIONS (2)
  - Progressive multifocal leukoencephalopathy [Recovering/Resolving]
  - Immunosuppression [Recovering/Resolving]
